FAERS Safety Report 5102614-2 (Version None)
Quarter: 2006Q3

REPORT INFORMATION
  Report Type: 
  Country: None (occurrence: None)
  Receive Date: 20060912
  Receipt Date: 20051228
  Transmission Date: 20061208
  Serious: Yes (Life-Threatening, Hospitalization, Other)
  Sender: FDA-Public Use
  Company Number: US-BAYER-200513122BWH

PATIENT
  Age: 63 Year
  Sex: Male
  Weight: 72 kg

DRUGS (27)
  1. SORAFENIB [Suspect]
     Indication: METASTATIC RENAL CELL CARCINOMA
     Dosage: TOTAL DAILY DOSE: 800 MG  UNIT DOSE: 200 MG
     Route: 048
     Dates: start: 20051127, end: 20051207
  2. SORAFENIB [Suspect]
     Dosage: TOTAL DAILY DOSE: 800 MG  UNIT DOSE: 200 MG
     Route: 048
     Dates: start: 20051216, end: 20051226
  3. SORAFENIB [Suspect]
     Dosage: TOTAL DAILY DOSE: 800 MG  UNIT DOSE: 200 MG
     Route: 048
     Dates: start: 20060123, end: 20060128
  4. SORAFENIB [Suspect]
     Dosage: TOTAL DAILY DOSE: 800 MG  UNIT DOSE: 200 MG
     Route: 048
     Dates: start: 20051209, end: 20051214
  5. SORAFENIB [Suspect]
     Dosage: TOTAL DAILY DOSE: 400 MG  UNIT DOSE: 200 MG
     Route: 048
     Dates: start: 20051123, end: 20051123
  6. ATENOLOL [Concomitant]
     Indication: HYPERTENSION
     Route: 048
  7. INSULIN REGULAR HUMULIN [Concomitant]
     Indication: DIABETES MELLITUS
     Route: 058
  8. LANTUS [Concomitant]
     Indication: DIABETES MELLITUS
     Route: 058
  9. LANTUS [Concomitant]
     Route: 058
  10. OXYCONTIN [Concomitant]
     Indication: PAIN
     Route: 048
     Dates: start: 20051016
  11. PERCOCET [Concomitant]
     Indication: PAIN
     Route: 048
  12. TOPAMAX [Concomitant]
     Indication: PAIN
     Route: 048
  13. TRAZODONE HCL [Concomitant]
     Indication: INSOMNIA
     Route: 048
     Dates: start: 20060118
  14. TRAZODONE HCL [Concomitant]
     Route: 048
  15. HYDRALAZINE HYDROCHLORIDE [Concomitant]
     Indication: HYPERTENSION
     Route: 048
     Dates: start: 20060103
  16. HYDROCHLOROTHIAZIDE [Concomitant]
     Indication: HYPERTENSION
     Route: 048
     Dates: start: 20060103
  17. NOVOLOG [Concomitant]
     Indication: DIABETES MELLITUS
     Route: 058
  18. NOVOLOG [Concomitant]
     Route: 058
  19. LISINOPRIL [Concomitant]
     Indication: HYPERTENSION
     Route: 048
     Dates: start: 20060103
  20. NORVASC [Concomitant]
     Indication: HYPERTENSION
     Route: 048
     Dates: start: 20060103
  21. REGLAN [Concomitant]
     Indication: GASTROINTESTINAL MOTILITY DISORDER
     Route: 048
     Dates: start: 20060117
  22. TOPROL-XL [Concomitant]
     Indication: HYPERTENSION
     Route: 048
     Dates: start: 20060103
  23. FLAGYL [Concomitant]
  24. CEFTRIAXONE [Concomitant]
  25. HYDROMORPHONE HCL [Concomitant]
  26. PHENERGAN [Concomitant]
  27. ZOFRAN [Concomitant]

REACTIONS (11)
  - AORTIC VALVE SCLEROSIS [None]
  - ATRIOVENTRICULAR BLOCK [None]
  - BRADYCARDIA [None]
  - BUNDLE BRANCH BLOCK RIGHT [None]
  - DUODENAL ULCER [None]
  - GASTROINTESTINAL HAEMORRHAGE [None]
  - ILEUS [None]
  - MYOCARDIAL INFARCTION [None]
  - POST PROCEDURAL COMPLICATION [None]
  - TROPONIN INCREASED [None]
  - VENTRICULAR HYPERTROPHY [None]
